FAERS Safety Report 5647226-7 (Version None)
Quarter: 2008Q1

REPORT INFORMATION
  Report Type: 
  Country: None (occurrence: None)
  Receive Date: 20080303
  Receipt Date: 20080222
  Transmission Date: 20080703
  Serious: Yes (Hospitalization)
  Sender: FDA-Public Use
  Company Number: AU-ROCHE-537805

PATIENT
  Age: 56 Year
  Sex: Male
  Weight: 83 kg

DRUGS (6)
  1. PEG-INTERFERON ALFA 2A (RO 25-8310) [Suspect]
     Dosage: FORM: INJECTION
     Route: 058
     Dates: start: 20060728
  2. RIBAVIRIN [Suspect]
     Route: 048
     Dates: start: 20060728
  3. IRBESARTAN AND HYDROCHLOROTHIAZIDE [Concomitant]
     Dosage: TOTAL DAILY DOSE: 150/12.5MG
  4. VITAMIN E [Concomitant]
     Dosage: TOTAL DAILY DOSE: ONE DAILY
  5. KYOLIC [Concomitant]
     Dosage: TOTAL DAILY DOSE: ONE DAILY
     Dates: end: 20071110
  6. COD LIVER OIL [Concomitant]

REACTIONS (1)
  - TYMPANIC MEMBRANE PERFORATION [None]
